FAERS Safety Report 8594932-0 (Version None)
Quarter: 2012Q2

REPORT INFORMATION
  Report Type: 
  Country: None (occurrence: None)
  Receive Date: 20120423
  Receipt Date: 20100625
  Transmission Date: 20120825
  Serious: Yes (Other)
  Sender: FDA-Public Use
  Company Number: PHHY2010US34185

PATIENT
  Age: 57 Year
  Sex: Male

DRUGS (2)
  1. EXJADE [Suspect]
     Indication: IRON OVERLOAD
     Dosage: 1625 MG, QD, ORAL
     Route: 048
     Dates: start: 20100527
  2. EXJADE [Suspect]
     Indication: BLOOD DISORDER
     Dosage: 1625 MG, QD, ORAL
     Route: 048
     Dates: start: 20100527

REACTIONS (3)
  - LIVER DISORDER [None]
  - DIARRHOEA [None]
  - PRURITUS GENERALISED [None]
